FAERS Safety Report 8774837 (Version 4)
Quarter: 2016Q1

REPORT INFORMATION
  Report Type: Report from Study
  Country: MX (occurrence: MX)
  Receive Date: 20120910
  Receipt Date: 20160302
  Transmission Date: 20160526
  Serious: Yes (Hospitalization)
  Sender: FDA-Public Use
  Company Number: MX-009507513-1208MEX000671

PATIENT
  Age: 53 Year
  Sex: Female
  Weight: 66.2 kg

DRUGS (7)
  1. CYCLOPHOSPHAMIDE. [Concomitant]
     Active Substance: CYCLOPHOSPHAMIDE
     Indication: CHEMOTHERAPY
     Dosage: 1 G, QD
     Route: 042
     Dates: start: 20120702, end: 20120703
  2. OMEPRAZOLE. [Concomitant]
     Active Substance: OMEPRAZOLE
     Indication: PROPHYLAXIS
     Dosage: 20 MG, QD
     Route: 048
     Dates: start: 20120702, end: 20120705
  3. VARICELLA-ZOSTER VIRUS VACCINE INACTIVATED (OKA/MERCK) [Suspect]
     Active Substance: VARICELLA-ZOSTER VIRUS STRAIN OKA/MERCK LIVE ANTIGEN
     Dosage: .5 ML
     Route: 058
     Dates: start: 20120906, end: 20120906
  4. MELPHALAN [Concomitant]
     Active Substance: MELPHALAN
     Indication: CHEMOTHERAPY
     Dosage: 160 MG, QD
     Route: 048
     Dates: start: 20120702, end: 20120703
  5. VARICELLA-ZOSTER VIRUS VACCINE INACTIVATED (OKA/MERCK) [Suspect]
     Active Substance: VARICELLA-ZOSTER VIRUS STRAIN OKA/MERCK LIVE ANTIGEN
     Dosage: .5 ML
     Route: 058
     Dates: start: 20120629, end: 20120629
  6. VARICELLA-ZOSTER VIRUS VACCINE INACTIVATED (OKA/MERCK) [Suspect]
     Active Substance: VARICELLA-ZOSTER VIRUS STRAIN OKA/MERCK LIVE ANTIGEN
     Dosage: .5 ML
     Route: 058
     Dates: start: 20120806, end: 20120806
  7. DEXAMETHASONE. [Suspect]
     Active Substance: DEXAMETHASONE
     Indication: STEROID WITHDRAWAL SYNDROME
     Dosage: 40 MG, QOD
     Route: 048
     Dates: start: 20120525, end: 20120620

REACTIONS (3)
  - Vomiting [None]
  - Diarrhoea [None]
  - Vomiting [Recovered/Resolved]

NARRATIVE: CASE EVENT DATE: 20120708
